FAERS Safety Report 25659083 (Version 1)
Quarter: 2025Q3

REPORT INFORMATION
  Report Type: Spontaneous
  Country: US (occurrence: US)
  Receive Date: 20250808
  Receipt Date: 20250808
  Transmission Date: 20251021
  Serious: Yes (Other)
  Sender: AUROBINDO
  Company Number: US-AUROBINDO-AUR-APL-2025-040243

PATIENT
  Age: 57 Year
  Sex: Female

DRUGS (6)
  1. MONTELUKAST [Suspect]
     Active Substance: MONTELUKAST
     Indication: Chronic obstructive pulmonary disease
     Route: 065
  2. FLUTICASONE FUROATE [Suspect]
     Active Substance: FLUTICASONE FUROATE
     Indication: Chronic obstructive pulmonary disease
     Route: 065
  3. UMECLIDINIUM [Suspect]
     Active Substance: UMECLIDINIUM
     Indication: Chronic obstructive pulmonary disease
     Route: 065
  4. VILANTEROL [Suspect]
     Active Substance: VILANTEROL
     Indication: Chronic obstructive pulmonary disease
     Route: 065
  5. ALBUTEROL [Concomitant]
     Active Substance: ALBUTEROL
     Indication: Chronic obstructive pulmonary disease
     Route: 065
  6. DUPILUMAB [Concomitant]
     Active Substance: DUPILUMAB
     Indication: Chronic obstructive pulmonary disease
     Route: 065

REACTIONS (1)
  - Drug ineffective [Unknown]
